FAERS Safety Report 5323697-0 (Version None)
Quarter: 2007Q2

REPORT INFORMATION
  Report Type: 
  Country: None (occurrence: None)
  Receive Date: 20070510
  Receipt Date: 20070510
  Transmission Date: 20071010
  Serious: No
  Sender: FDA-Public Use
  Company Number: None

PATIENT
  Age: 54 Year
  Sex: Male
  Weight: 146.6 kg

DRUGS (1)
  1. SUTENT [Suspect]
     Indication: IMPAIRED HEALING
     Dosage: 50MG  X 28D OFF 14D  PO
     Route: 048
     Dates: start: 20061016, end: 20070309

REACTIONS (4)
  - BLISTER [None]
  - IMPAIRED HEALING [None]
  - PAIN [None]
  - SKIN ULCER [None]
